FAERS Safety Report 8961538 (Version 1)
Quarter: 2012Q4

REPORT INFORMATION
  Report Type: Report from Study
  Country: PL (occurrence: PL)
  Receive Date: 20121212
  Receipt Date: 20121212
  Transmission Date: 20130627
  Serious: Yes (Hospitalization)
  Sender: FDA-Public Use
  Company Number: PL-BAXTER-2012BAX026512

PATIENT
  Age: 60 Year
  Sex: Female
  Weight: 86 kg

DRUGS (13)
  1. ENDOXAN [Suspect]
     Indication: BREAST CANCER
     Route: 042
     Dates: start: 20090118
  2. ENDOXAN [Suspect]
     Route: 042
     Dates: start: 20090120
  3. TRASTUZUMAB [Suspect]
     Indication: BREAST CANCER
     Dosage: LOADING DOSE
     Route: 042
     Dates: start: 20090512
  4. TRASTUZUMAB [Suspect]
     Dosage: MAINTENANCE DOSE
     Route: 042
     Dates: start: 20090602, end: 20100324
  5. TRASTUZUMAB [Suspect]
     Route: 042
     Dates: start: 20100330
  6. PERTUZUMAB [Suspect]
     Indication: BREAST CANCER
     Dosage: LOADING DOSE
     Route: 042
     Dates: start: 20090512
  7. PERTUZUMAB [Suspect]
     Route: 042
     Dates: start: 20090714
  8. ANASTROZOLE [Suspect]
     Indication: DRUG USE FOR UNKNOWN INDICATION
     Route: 065
     Dates: start: 20100303, end: 20100322
  9. DOCETAXEL [Suspect]
     Indication: BREAST CANCER
     Route: 042
     Dates: start: 20090828
  10. FLUOROURACIL [Suspect]
     Indication: BREAST CANCER
     Route: 042
     Dates: start: 20091118
  11. FLUOROURACIL [Suspect]
     Route: 042
     Dates: start: 20100120
  12. EPIRUBICIN [Suspect]
     Indication: BREAST CANCER
     Route: 042
     Dates: start: 20091118
  13. EPIRUBICIN [Suspect]
     Route: 042
     Dates: start: 20090120

REACTIONS (1)
  - Rash papular [Recovered/Resolved]
